FAERS Safety Report 19397632 (Version 3)
Quarter: 2022Q1

REPORT INFORMATION
  Report Type: Spontaneous
  Country: US (occurrence: US)
  Receive Date: 20210610
  Receipt Date: 20220324
  Transmission Date: 20220423
  Serious: Yes (Other)
  Sender: FDA-Public Use
  Company Number: US-GILEAD-2021-0534867

PATIENT
  Age: 59 Year
  Sex: Male
  Weight: 78.005 kg

DRUGS (21)
  1. VIREAD [Suspect]
     Active Substance: TENOFOVIR DISOPROXIL FUMARATE
     Indication: HIV infection
     Dosage: UNK
     Route: 048
     Dates: start: 200802, end: 201801
  2. TRUVADA [Suspect]
     Active Substance: EMTRICITABINE\TENOFOVIR DISOPROXIL FUMARATE
     Indication: HIV infection
     Dosage: UNK
     Route: 065
     Dates: start: 200410, end: 200802
  3. EMTRIVA [Concomitant]
     Active Substance: EMTRICITABINE
     Indication: HIV infection
     Dosage: UNK
     Dates: start: 201609, end: 201612
  4. EPIVIR [Concomitant]
     Active Substance: LAMIVUDINE
  5. FUZEON [Concomitant]
     Active Substance: ENFUVIRTIDE
  6. ISENTRESS [Concomitant]
     Active Substance: RALTEGRAVIR POTASSIUM
     Indication: HIV infection
     Dosage: UNK
     Dates: start: 2009
  7. KALETRA [Concomitant]
     Active Substance: LOPINAVIR\RITONAVIR
  8. LEXIVA [Concomitant]
     Active Substance: FOSAMPRENAVIR CALCIUM
  9. RETROVIR [Concomitant]
     Active Substance: ZIDOVUDINE
  10. SUSTIVA [Concomitant]
     Active Substance: EFAVIRENZ
     Indication: Nightmare
     Dosage: UNK
     Dates: start: 200807
  11. SYMTUZA [Concomitant]
     Active Substance: COBICISTAT\DARUNAVIR\EMTRICITABINE\TENOFOVIR ALAFENAMIDE
     Indication: HIV infection
     Dosage: UNK
     Dates: start: 201701, end: 201902
  12. TIVICAY [Concomitant]
     Active Substance: DOLUTEGRAVIR SODIUM
  13. VIRACEPT [Concomitant]
     Active Substance: NELFINAVIR MESYLATE
  14. VIRAMUNE [Concomitant]
     Active Substance: NEVIRAPINE
  15. CRESTOR [Concomitant]
     Active Substance: ROSUVASTATIN CALCIUM
     Indication: Blood cholesterol increased
     Dosage: UNK
     Dates: start: 2009
  16. LANTUS [Concomitant]
     Active Substance: INSULIN GLARGINE
     Indication: Diabetes mellitus
     Dosage: UNK
     Dates: start: 2000
  17. LISINOPRIL [Concomitant]
     Active Substance: LISINOPRIL
     Indication: Hypertension
     Dosage: UNK
     Dates: start: 2014
  18. LISINOPRIL [Concomitant]
     Active Substance: LISINOPRIL
     Indication: Cardiac disorder
  19. NATURE^S BOUNTY CALCIUM [Concomitant]
     Indication: Mineral supplementation
     Dosage: UNK
     Dates: start: 201905
  20. NATUREMADE CALCIUM CARBONATE [Concomitant]
     Indication: Mineral supplementation
     Dosage: UNK
     Dates: start: 201701
  21. SYNTHROID [Concomitant]
     Active Substance: LEVOTHYROXINE SODIUM

REACTIONS (11)
  - Osteoporosis [Not Recovered/Not Resolved]
  - Spinal compression fracture [Not Recovered/Not Resolved]
  - Bone density decreased [Unknown]
  - Rib fracture [Unknown]
  - Emotional distress [Not Recovered/Not Resolved]
  - Anhedonia [Not Recovered/Not Resolved]
  - Osteopenia [Not Recovered/Not Resolved]
  - Fall [Unknown]
  - Anxiety [Not Recovered/Not Resolved]
  - Pain [Not Recovered/Not Resolved]
  - Asthenia [Unknown]

NARRATIVE: CASE EVENT DATE: 20110501
